FAERS Safety Report 12723728 (Version 1)
Quarter: 2016Q3

REPORT INFORMATION
  Report Type: Spontaneous
  Country: US (occurrence: US)
  Receive Date: 20160906
  Receipt Date: 20160906
  Transmission Date: 20161109
  Serious: No
  Sender: FDA-Public Use
  Company Number: None

PATIENT
  Age: 74 Year
  Sex: Female

DRUGS (11)
  1. FUROSEMIDE. [Concomitant]
     Active Substance: FUROSEMIDE
  2. METHOTREXATE. [Concomitant]
     Active Substance: METHOTREXATE
  3. MENEST [Concomitant]
     Active Substance: ESTROGENS, ESTERIFIED
  4. FOLIC ACID. [Concomitant]
     Active Substance: FOLIC ACID
  5. TRAMADOL. [Concomitant]
     Active Substance: TRAMADOL
  6. FAMOTIDINE. [Concomitant]
     Active Substance: FAMOTIDINE
  7. BUTRANS [Concomitant]
     Active Substance: BUPRENORPHINE
  8. FERROUS SULFATE. [Concomitant]
     Active Substance: FERROUS SULFATE
  9. ORENCIA [Suspect]
     Active Substance: ABATACEPT
     Indication: RHEUMATOID ARTHRITIS
     Route: 058
     Dates: start: 20160714, end: 20160906
  10. PREDNISONE. [Concomitant]
     Active Substance: PREDNISONE
  11. AMLODIPINE [Concomitant]
     Active Substance: AMLODIPINE BESYLATE

REACTIONS (3)
  - Dizziness [None]
  - Urinary tract infection [None]
  - Urine odour abnormal [None]

NARRATIVE: CASE EVENT DATE: 20160906
